FAERS Safety Report 12831930 (Version 1)
Quarter: 2016Q4

REPORT INFORMATION
  Report Type: Spontaneous
  Country: KR (occurrence: KR)
  Receive Date: 20161010
  Receipt Date: 20161010
  Transmission Date: 20170207
  Serious: Yes (Other)
  Sender: FDA-Public Use
  Company Number: KR-ACCORD-044712

PATIENT
  Age: 60 Year
  Sex: Male

DRUGS (3)
  1. ALLOPURINOL. [Suspect]
     Active Substance: ALLOPURINOL
     Indication: GOUT
  2. COLCHICINE. [Suspect]
     Active Substance: COLCHICINE
     Indication: GOUT
  3. LOXOPROFEN [Suspect]
     Active Substance: LOXOPROFEN
     Indication: GOUT

REACTIONS (3)
  - Hypereosinophilic syndrome [Unknown]
  - Guillain-Barre syndrome [Unknown]
  - Liver function test increased [Unknown]
